FAERS Safety Report 19990679 (Version 1)
Quarter: 2021Q4

REPORT INFORMATION
  Report Type: Spontaneous
  Country: US (occurrence: US)
  Receive Date: 20211023
  Receipt Date: 20211023
  Transmission Date: 20220303
  Serious: Yes (Other)
  Sender: FDA-Public Use
  Company Number: None

PATIENT
  Age: 42 Year
  Sex: Female
  Weight: 99 kg

DRUGS (1)
  1. NURTEC ODT [Suspect]
     Active Substance: RIMEGEPANT SULFATE
     Indication: Vestibular migraine
     Dosage: ?          OTHER FREQUENCY:1 EVERY OTHER DAY;
     Route: 060
     Dates: start: 20211013, end: 20211021

REACTIONS (1)
  - Rash [None]

NARRATIVE: CASE EVENT DATE: 20211021
